FAERS Safety Report 16138944 (Version 1)
Quarter: 2019Q1

REPORT INFORMATION
  Report Type: Report from Study
  Country: None (occurrence: US)
  Receive Date: 20190330
  Receipt Date: 20190330
  Transmission Date: 20190418
  Serious: Yes (Other)
  Sender: FDA-Public Use
  Company Number: US-ABBVIE-19K-163-2722360-00

PATIENT
  Sex: Female

DRUGS (2)
  1. PREDNISONE. [Suspect]
     Active Substance: PREDNISONE
     Indication: PRODUCT USED FOR UNKNOWN INDICATION
     Route: 065
  2. HUMIRA [Suspect]
     Active Substance: ADALIMUMAB
     Indication: UVEITIS
     Route: 058

REACTIONS (10)
  - Eye inflammation [Unknown]
  - Dyspnoea [Unknown]
  - Hydrothorax [Recovered/Resolved]
  - Swelling [Unknown]
  - Injection site bruising [Unknown]
  - Spinal pain [Not Recovered/Not Resolved]
  - Eye oedema [Not Recovered/Not Resolved]
  - Hypertension [Recovered/Resolved]
  - Injection site pain [Unknown]
  - Macular degeneration [Not Recovered/Not Resolved]
